FAERS Safety Report 13617579 (Version 1)
Quarter: 2017Q2

REPORT INFORMATION
  Report Type: Spontaneous
  Country: US (occurrence: US)
  Receive Date: 20170606
  Receipt Date: 20170606
  Transmission Date: 20170830
  Serious: No
  Sender: FDA-Public Use
  Company Number: US-SA-2017SA042252

PATIENT
  Age: 69 Year
  Sex: Male

DRUGS (2)
  1. SOLOSTAR [Concomitant]
     Active Substance: DEVICE
     Dates: start: 2007
  2. LANTUS SOLOSTAR [Suspect]
     Active Substance: INSULIN GLARGINE
     Indication: DIABETES MELLITUS
     Dosage: 90AM/60 PM
     Route: 065
     Dates: start: 2007

REACTIONS (9)
  - Somnolence [Unknown]
  - Peripheral swelling [Unknown]
  - Joint swelling [Unknown]
  - Injection site reaction [Unknown]
  - Vision blurred [Unknown]
  - Back pain [Unknown]
  - Injection site pain [Unknown]
  - Dyspnoea [Unknown]
  - Weight increased [Unknown]

NARRATIVE: CASE EVENT DATE: 2016
